FAERS Safety Report 8915383 (Version 1)
Quarter: 2012Q4

REPORT INFORMATION
  Report Type: Report from Study
  Country: JP (occurrence: JP)
  Receive Date: 20121116
  Receipt Date: 20121116
  Transmission Date: 20130627
  Serious: Yes (Hospitalization)
  Sender: FDA-Public Use
  Company Number: JP-VERTEX PHARMACEUTICAL INC.-AE-2012-003435

PATIENT
  Age: 64 Year
  Sex: Male

DRUGS (8)
  1. VX-950 (TELAPREVIR) [Suspect]
     Indication: HEPATITIS C
     Dosage: 2250 mg, qd
     Route: 048
     Dates: start: 20120120, end: 20120216
  2. VX-950 (TELAPREVIR) [Suspect]
     Dosage: 1500 mg, qd
     Route: 048
     Dates: start: 20120217, end: 20120413
  3. RIBAVIRIN [Suspect]
     Indication: CHRONIC HEPATITIS C
     Dosage: 600 mg, qd
     Route: 048
     Dates: start: 20120120, end: 20120126
  4. RIBAVIRIN [Suspect]
     Dosage: 400 mg, qd
     Route: 048
     Dates: start: 20120127, end: 20120224
  5. RIBAVIRIN [Suspect]
     Dosage: 200 mg, qd
     Route: 048
     Dates: start: 20120225
  6. PEGINTERFERON ALFA- 2B [Suspect]
     Indication: CHRONIC HEPATITIS C
     Dosage: 1.4 ?g/kg, qw
     Route: 058
     Dates: start: 20120120
  7. PEGINTERFERON ALFA- 2B [Suspect]
     Route: 051
  8. LOXOPROFEN [Concomitant]
     Route: 048
     Dates: start: 20120120

REACTIONS (7)
  - Decreased appetite [Recovered/Resolved]
  - Haemoglobin decreased [None]
  - Pyrexia [None]
  - Insomnia [None]
  - Platelet count decreased [None]
  - Malaise [None]
  - Somnolence [None]
